FAERS Safety Report 8162391-8 (Version None)
Quarter: 2012Q1

REPORT INFORMATION
  Report Type: 
  Country: None (occurrence: None)
  Receive Date: 20120224
  Receipt Date: 20120214
  Transmission Date: 20120608
  Serious: No
  Sender: FDA-Public Use
  Company Number: US-ELI_LILLY_AND_COMPANY-US201112006216

PATIENT
  Sex: Female

DRUGS (4)
  1. FORTEO [Suspect]
     Indication: OSTEOPOROSIS
     Dosage: 20 UG, QD
  2. METHOTREXATE [Concomitant]
     Indication: RHEUMATOID ARTHRITIS
     Dosage: UNK, WEEKLY (1/W)
  3. FOLIC ACID [Concomitant]
     Indication: RHEUMATOID ARTHRITIS
  4. PREDNISONE [Concomitant]
     Indication: RHEUMATOID ARTHRITIS
     Dosage: UNK, QD

REACTIONS (11)
  - SPINAL FRACTURE [None]
  - OSTEOARTHRITIS [None]
  - JOINT SWELLING [None]
  - DRUG DOSE OMISSION [None]
  - BONE DISORDER [None]
  - FOOT FRACTURE [None]
  - HAND FRACTURE [None]
  - INTERVERTEBRAL DISC DEGENERATION [None]
  - BODY HEIGHT DECREASED [None]
  - ARTHRALGIA [None]
  - RHEUMATOID ARTHRITIS [None]
